FAERS Safety Report 23159384 (Version 3)
Quarter: 2023Q4

REPORT INFORMATION
  Report Type: Report from Study
  Country: US (occurrence: US)
  Receive Date: 20231108
  Receipt Date: 20231215
  Transmission Date: 20240110
  Serious: No
  Sender: FDA-Public Use
  Company Number: US-BIOVITRUM-2023-US-017734

PATIENT
  Age: 52 Year
  Sex: Female

DRUGS (2)
  1. KINERET [Suspect]
     Active Substance: ANAKINRA
     Indication: Gout
     Dosage: 100 MG DAILY
     Route: 058
     Dates: start: 20231013
  2. CORTROTHIN GEL [Concomitant]
     Indication: Product used for unknown indication

REACTIONS (4)
  - Intentional product misuse [Not Recovered/Not Resolved]
  - Hypersensitivity [Unknown]
  - Rash [Recovered/Resolved]
  - Product dose omission issue [Unknown]

NARRATIVE: CASE EVENT DATE: 20231013
